FAERS Safety Report 5616344-1 (Version None)
Quarter: 2008Q1

REPORT INFORMATION
  Report Type: 
  Country: None (occurrence: None)
  Receive Date: 20080206
  Receipt Date: 20080206
  Transmission Date: 20080703
  Serious: Yes (Hospitalization)
  Sender: FDA-Public Use
  Company Number: None

PATIENT
  Sex: Male
  Weight: 97.3 kg

DRUGS (1)
  1. TEMOZOLOMIDE [Suspect]
     Dosage: 165 MG

REACTIONS (1)
  - PLATELET COUNT DECREASED [None]
